FAERS Safety Report 22386686 (Version 2)
Quarter: 2023Q2

REPORT INFORMATION
  Report Type: Spontaneous
  Country: US (occurrence: US)
  Receive Date: 20230531
  Receipt Date: 20230613
  Transmission Date: 20230722
  Serious: Yes (Other)
  Sender: FDA-Public Use
  Company Number: US-MALLINCKRODT-MNK202300356

PATIENT
  Sex: Male
  Weight: 5 kg

DRUGS (4)
  1. CORTICOTROPIN [Suspect]
     Active Substance: CORTICOTROPIN
     Indication: Infantile spasms
     Dosage: 23.2 U BID FOR 14 DAYS
     Route: 030
     Dates: start: 20230309, end: 202303
  2. CORTICOTROPIN [Suspect]
     Active Substance: CORTICOTROPIN
     Route: 030
     Dates: start: 202303, end: 20230524
  3. KEPPRA [Concomitant]
     Active Substance: LEVETIRACETAM
     Indication: Product used for unknown indication
     Dosage: UNKNOWN
  4. PHENOBARBITAL [Concomitant]
     Active Substance: PHENOBARBITAL
     Indication: Product used for unknown indication
     Dosage: UNKNOWN

REACTIONS (11)
  - Infantile spasms [Not Recovered/Not Resolved]
  - Disease recurrence [Not Recovered/Not Resolved]
  - Partial seizures [Not Recovered/Not Resolved]
  - Confusional state [Not Recovered/Not Resolved]
  - Eye movement disorder [Not Recovered/Not Resolved]
  - Crying [Recovered/Resolved]
  - Irritability [Not Recovered/Not Resolved]
  - Personality disorder [Recovering/Resolving]
  - Drug ineffective [Not Recovered/Not Resolved]
  - Therapeutic product effect incomplete [Not Recovered/Not Resolved]
  - Wrong technique in product usage process [Unknown]

NARRATIVE: CASE EVENT DATE: 20230101
